FAERS Safety Report 13415182 (Version 1)
Quarter: 2017Q2

REPORT INFORMATION
  Report Type: Spontaneous
  Country: US (occurrence: US)
  Receive Date: 20170407
  Receipt Date: 20170407
  Transmission Date: 20170830
  Serious: Yes (Other)
  Sender: FDA-Public Use
  Company Number: US-VIFOR (INTERNATIONAL) INC.-VIT-2017-03550

PATIENT
  Age: 72 Year
  Sex: Male

DRUGS (11)
  1. VELTASSA [Suspect]
     Active Substance: PATIROMER
     Indication: HYPERKALAEMIA
     Route: 048
     Dates: start: 20161202, end: 2017
  2. SIMVASTATIN. [Concomitant]
     Active Substance: SIMVASTATIN
  3. FERROUS SULFATE. [Concomitant]
     Active Substance: FERROUS SULFATE
  4. AMITRIPTYLINE [Concomitant]
     Active Substance: AMITRIPTYLINE
  5. AMLODIPINE [Concomitant]
     Active Substance: AMLODIPINE BESYLATE
  6. TAMULOSIN [Concomitant]
     Active Substance: TAMSULOSIN
  7. SODIUM BICARBONATE. [Concomitant]
     Active Substance: SODIUM BICARBONATE
  8. CALCITROL [Concomitant]
     Active Substance: CALCITRIOL
  9. FUROSEMIDE. [Concomitant]
     Active Substance: FUROSEMIDE
  10. NOVOLIN [Concomitant]
     Active Substance: INSULIN HUMAN
  11. CARVEDILOL. [Concomitant]
     Active Substance: CARVEDILOL

REACTIONS (1)
  - Dialysis [Unknown]

NARRATIVE: CASE EVENT DATE: 201702
